FAERS Safety Report 16020482 (Version 1)
Quarter: 2019Q1

REPORT INFORMATION
  Report Type: Spontaneous
  Country: US (occurrence: US)
  Receive Date: 20190301
  Receipt Date: 20190301
  Transmission Date: 20190418
  Serious: No
  Sender: FDA-Public Use
  Company Number: US-JNJFOC-20190218010

PATIENT
  Age: 67 Year
  Sex: Male
  Weight: 122.02 kg

DRUGS (1)
  1. RISPERIDONE. [Suspect]
     Active Substance: RISPERIDONE
     Indication: SCHIZOPHRENIA
     Route: 048
     Dates: start: 2007

REACTIONS (3)
  - Platelet count decreased [Not Recovered/Not Resolved]
  - Dental caries [Not Recovered/Not Resolved]
  - Abnormal loss of weight [Unknown]

NARRATIVE: CASE EVENT DATE: 201812
